FAERS Safety Report 13967311 (Version 1)
Quarter: 2017Q3

REPORT INFORMATION
  Report Type: Spontaneous
  Country: US (occurrence: US)
  Receive Date: 20170914
  Receipt Date: 20170914
  Transmission Date: 20171128
  Serious: Yes (Other)
  Sender: FDA-Public Use
  Company Number: US-B.I. PHARMACEUTICALS,INC./RIDGEFIELD-2017-BI-049934

PATIENT
  Age: 96 Year
  Sex: Female

DRUGS (1)
  1. COMBIVENT [Suspect]
     Active Substance: ALBUTEROL SULFATE\IPRATROPIUM BROMIDE
     Indication: CARDIAC FAILURE CONGESTIVE
     Dosage: FORM STRENGTH: 20 MCG / 100 MCG;  ADMINISTRATION CORRECT? NO
     Route: 055
     Dates: start: 20170901

REACTIONS (4)
  - Breast cancer [Not Recovered/Not Resolved]
  - Dysgeusia [Not Recovered/Not Resolved]
  - Medication error [Unknown]
  - Product use in unapproved indication [Unknown]

NARRATIVE: CASE EVENT DATE: 20170901
